FAERS Safety Report 24837766 (Version 4)
Quarter: 2025Q2

REPORT INFORMATION
  Report Type: Spontaneous
  Country: FR (occurrence: FR)
  Receive Date: 20250113
  Receipt Date: 20250411
  Transmission Date: 20250717
  Serious: Yes (Other)
  Sender: MERCK SHARP AND DOHME
  Company Number: FR-009507513-2501FRA002453

PATIENT
  Age: 53 Year
  Sex: Female

DRUGS (8)
  1. SOTATERCEPT [Suspect]
     Active Substance: SOTATERCEPT
     Indication: Pulmonary arterial pressure
     Route: 058
     Dates: start: 20240624
  2. SOTATERCEPT [Suspect]
     Active Substance: SOTATERCEPT
     Dosage: THEN INJECTION EVERY 3 WEEKS AT 0.7 MG/KG
     Route: 058
     Dates: end: 20241219
  3. SOTATERCEPT [Suspect]
     Active Substance: SOTATERCEPT
  4. SOTATERCEPT [Suspect]
     Active Substance: SOTATERCEPT
  5. BOSENTAN [Concomitant]
     Active Substance: BOSENTAN
     Dosage: DOSE DESCRIPTION : 125 MILLIGRAM, MORNING AND EVENING?DAILY DOSE : 250 MILLIGRAM
  6. TADALAFIL [Concomitant]
     Active Substance: TADALAFIL
     Dosage: DOSE DESCRIPTION : 20 MILLIGRAM (2 TAB), QD?DAILY DOSE : 20 MILLIGRAM
  7. TREPROSTINIL [Concomitant]
     Active Substance: TREPROSTINIL
     Indication: Pulmonary arterial pressure
     Route: 058
  8. FUROSEMIDE [Concomitant]
     Active Substance: FUROSEMIDE
     Dosage: DOSE DESCRIPTION : 20 MILLIGRAM, QD?DAILY DOSE : 20 MILLIGRAM

REACTIONS (2)
  - Pericardial effusion [Unknown]
  - Drug ineffective [Unknown]

NARRATIVE: CASE EVENT DATE: 20241219
